FAERS Safety Report 6874968-8 (Version None)
Quarter: 2010Q2

REPORT INFORMATION
  Report Type: 
  Country: None (occurrence: None)
  Receive Date: 20100616
  Receipt Date: 20090310
  Transmission Date: 20101027
  Serious: Yes (Hospitalization)
  Sender: FDA-Public Use
  Company Number: 1000004937

PATIENT
  Age: 76 Year
  Sex: Male
  Weight: 99.7913 kg

DRUGS (15)
  1. NAMENDA [Suspect]
     Indication: DEMENTIA
     Dosage: 5 MG (5 MG,1 IN 1 D),ORAL
     Route: 048
     Dates: start: 20090201, end: 20090207
  2. NAMENDA [Suspect]
     Indication: DEMENTIA
     Dosage: 10 MG (5 MG,2 IN 1 D),ORAL
     Route: 048
     Dates: start: 20090208, end: 20090208
  3. ARICEPT [Concomitant]
  4. LOPRESSOR [Concomitant]
  5. IMDUR [Concomitant]
  6. FOLIC ACID [Concomitant]
  7. AVAPRO [Concomitant]
  8. GLUCOPHAGE [Concomitant]
  9. FISH OIL [Concomitant]
  10. LEVOTHYROXINE SODIUM [Concomitant]
  11. PLAVIX [Concomitant]
  12. ASPIRIN [Concomitant]
  13. TIMOLOL MALEATE [Concomitant]
  14. OXYBUTYNIN CHLORIDE [Concomitant]
  15. METAMUCIL-2 [Concomitant]

REACTIONS (1)
  - CEREBROVASCULAR ACCIDENT [None]
